FAERS Safety Report 9949363 (Version 2)
Quarter: 2014Q2

REPORT INFORMATION
  Report Type: Spontaneous
  Country: US (occurrence: None)
  Receive Date: 20140122
  Receipt Date: 20140421
  Transmission Date: 20141212
  Serious: No
  Sender: FDA-Public Use
  Company Number: AEGR000164

PATIENT
  Age: 61 Year
  Sex: Female
  Weight: 49 kg

DRUGS (5)
  1. JUXTAPID [Suspect]
     Indication: TYPE IIA HYPERLIPIDAEMIA
     Route: 048
     Dates: start: 20130309, end: 2013
  2. CRESTOR (ROSUVASTATIN CALCIUM) [Concomitant]
  3. ZETIA (EZETIMIBE) [Concomitant]
  4. METOPROLOL (METOPROLOL TARTRATE) [Concomitant]
  5. AMLODIPINE (AMLODIPINE BESILATE) [Concomitant]

REACTIONS (2)
  - Weight decreased [None]
  - Nausea [None]
